FAERS Safety Report 8164549-0 (Version None)
Quarter: 2012Q1

REPORT INFORMATION
  Report Type: 
  Country: None (occurrence: None)
  Receive Date: 20120226
  Receipt Date: 20120213
  Transmission Date: 20120608
  Serious: Yes (Other)
  Sender: FDA-Public Use
  Company Number: IT-BRISTOL-MYERS SQUIBB COMPANY-16397945

PATIENT
  Age: 40 Year
  Sex: Female

DRUGS (4)
  1. BLEOMYCIN SULFATE [Suspect]
     Indication: HODGKIN'S DISEASE
     Dosage: RECEIVED SIX COURSES
  2. VINBLASTINE SULFATE [Suspect]
     Indication: HODGKIN'S DISEASE
     Dosage: RECEIVED SIX COURSES
  3. ADRIAMYCIN PFS [Suspect]
     Indication: HODGKIN'S DISEASE
     Dosage: COURSES:6.
  4. DACARBAZINE [Suspect]
     Indication: HODGKIN'S DISEASE
     Dosage: RECEIVED SIX COURSES  TOTAL DOSE: 300MG/SM OF ADM

REACTIONS (3)
  - CORONARY ARTERY DISEASE [None]
  - LEFT VENTRICULAR DYSFUNCTION [None]
  - BUNDLE BRANCH BLOCK LEFT [None]
